FAERS Safety Report 15112735 (Version 1)
Quarter: 2018Q3

REPORT INFORMATION
  Report Type: Spontaneous
  Country: US (occurrence: US)
  Receive Date: 20180705
  Receipt Date: 20180705
  Transmission Date: 20181010
  Serious: No
  Sender: FDA-Public Use
  Company Number: US-GALDERMA-US18001165

PATIENT
  Age: 69 Year
  Sex: Female

DRUGS (2)
  1. ORACEA [Suspect]
     Active Substance: DOXYCYCLINE
     Indication: ACNE
     Dosage: 40 MG
     Route: 048
     Dates: start: 20171228, end: 201712
  2. ORACEA [Suspect]
     Active Substance: DOXYCYCLINE
     Dosage: 40 MG
     Route: 048
     Dates: start: 2017, end: 201712

REACTIONS (8)
  - Drug ineffective for unapproved indication [Not Recovered/Not Resolved]
  - Abdominal discomfort [Recovered/Resolved]
  - Tooth discolouration [Not Recovered/Not Resolved]
  - Throat tightness [Recovered/Resolved]
  - Diarrhoea [Recovered/Resolved]
  - Malaise [Recovered/Resolved]
  - Fatigue [Recovered/Resolved]
  - Product use in unapproved indication [Recovered/Resolved]

NARRATIVE: CASE EVENT DATE: 2017
